FAERS Safety Report 8380715-3 (Version None)
Quarter: 2012Q2

REPORT INFORMATION
  Report Type: 
  Country: None (occurrence: None)
  Receive Date: 20120523
  Receipt Date: 20120510
  Transmission Date: 20120825
  Serious: Yes (Other)
  Sender: FDA-Public Use
  Company Number: DE-ROCHE-1061042

PATIENT
  Sex: Male
  Weight: 90 kg

DRUGS (16)
  1. LEUCOVORIN CALCIUM [Concomitant]
     Route: 042
     Dates: start: 20111101, end: 20120101
  2. LEUCOVORIN CALCIUM [Concomitant]
     Route: 042
     Dates: start: 20100801, end: 20110201
  3. FLUOROURACIL [Concomitant]
     Indication: COLON CANCER METASTATIC
     Route: 042
     Dates: start: 20120326
  4. DEXAMETHASONE SODIUM PHOSPHATE [Concomitant]
     Indication: PROPHYLAXIS OF NAUSEA AND VOMITING
  5. IRINOTECAN HCL [Concomitant]
     Route: 042
     Dates: start: 20111101, end: 20120101
  6. LEUCOVORIN CALCIUM [Concomitant]
     Indication: COLON CANCER METASTATIC
     Route: 042
     Dates: start: 20120326
  7. DEXAMETHASONE SODIUM PHOSPHATE [Concomitant]
     Indication: COLON CANCER METASTATIC
     Route: 042
     Dates: start: 20120326
  8. IRINOTECAN HCL [Concomitant]
     Route: 042
     Dates: start: 20100801, end: 20110201
  9. FLUOROURACIL [Concomitant]
     Route: 042
     Dates: start: 20111101, end: 20120101
  10. IRINOTECAN HCL [Concomitant]
     Indication: COLON CANCER METASTATIC
     Route: 042
     Dates: start: 20120326
  11. BEVACIZUMAB [Suspect]
     Indication: COLON CANCER METASTATIC
     Route: 042
     Dates: start: 20120326
  12. BEVACIZUMAB [Suspect]
     Route: 042
     Dates: start: 20011101, end: 20120101
  13. BEVACIZUMAB [Suspect]
     Route: 042
     Dates: start: 20100801, end: 20110201
  14. ONDANSETRON [Concomitant]
     Indication: PROPHYLAXIS OF NAUSEA AND VOMITING
     Route: 042
     Dates: start: 20120326
  15. FLUOROURACIL [Concomitant]
     Route: 042
     Dates: start: 20100801, end: 20110201
  16. FLUOROURACIL [Concomitant]
     Route: 042
     Dates: start: 20110901

REACTIONS (2)
  - DUODENAL ULCER PERFORATION [None]
  - NEOPLASM MALIGNANT [None]
